FAERS Safety Report 9800062 (Version 2)
Quarter: 2014Q1

REPORT INFORMATION
  Report Type: Spontaneous
  Country: US (occurrence: US)
  Receive Date: 20140106
  Receipt Date: 20140106
  Transmission Date: 20141002
  Serious: Yes (Other)
  Sender: FDA-Public Use
  Company Number: US-GILEAD-2010-0030949

PATIENT
  Sex: Female
  Weight: 94.35 kg

DRUGS (15)
  1. LETAIRIS [Suspect]
     Indication: PULMONARY ARTERIAL HYPERTENSION
     Route: 048
     Dates: start: 20070928
  2. FUROSEMIDE [Concomitant]
  3. DIGOXIN [Concomitant]
  4. CARVEDILOL [Concomitant]
  5. LIPITOR [Concomitant]
  6. ALTACE [Concomitant]
  7. ASPIRIN [Concomitant]
  8. LEVEMIR [Concomitant]
  9. AMOXICILLIN [Concomitant]
  10. GLYBURIDE-METFORMIN [Concomitant]
  11. PENICILLIN VK [Concomitant]
  12. CEPHALEXIN [Concomitant]
  13. CORTISONE AC [Concomitant]
  14. LORAZEPAM [Concomitant]
  15. V-R FERROUS SULFATE [Concomitant]

REACTIONS (2)
  - Liver function test abnormal [Unknown]
  - Oedema [Unknown]
